FAERS Safety Report 15339133 (Version 1)
Quarter: 2018Q3

REPORT INFORMATION
  Report Type: Spontaneous
  Country: US (occurrence: US)
  Receive Date: 20180830
  Receipt Date: 20180830
  Transmission Date: 20181010
  Serious: Yes (Life-Threatening)
  Sender: FDA-Public Use
  Company Number: None

PATIENT
  Age: 22 Year
  Sex: Male
  Weight: 77.11 kg

DRUGS (1)
  1. PREMIUM RED MAENG DA CRAZY KRATOM [Suspect]
     Active Substance: MITRAGYNINE\HERBALS
     Indication: ANXIETY
     Route: 048
     Dates: start: 20170901, end: 20180827

REACTIONS (7)
  - Head injury [None]
  - Fall [None]
  - Seizure [None]
  - Cerebral haemorrhage [None]
  - Fatigue [None]
  - Vomiting [None]
  - Incoherent [None]

NARRATIVE: CASE EVENT DATE: 20180827
